FAERS Safety Report 24270152 (Version 2)
Quarter: 2024Q3

REPORT INFORMATION
  Report Type: Spontaneous
  Country: JP (occurrence: JP)
  Receive Date: 20240830
  Receipt Date: 20240910
  Transmission Date: 20241016
  Serious: Yes (Other)
  Sender: TEVA
  Company Number: JP-TEVA-VS-3237894

PATIENT
  Age: 17 Year
  Sex: Male

DRUGS (1)
  1. LEVOCETIRIZINE HYDROCHLORIDE [Suspect]
     Active Substance: LEVOCETIRIZINE HYDROCHLORIDE
     Indication: Dermatitis atopic
     Dosage: DOSAGE IS UNKNOWN
     Route: 048
     Dates: start: 202211, end: 20230118

REACTIONS (2)
  - Condition aggravated [Not Recovered/Not Resolved]
  - Alopecia [Not Recovered/Not Resolved]

NARRATIVE: CASE EVENT DATE: 20221123
